FAERS Safety Report 7591838-0 (Version None)
Quarter: 2011Q2

REPORT INFORMATION
  Report Type: 
  Country: None (occurrence: None)
  Receive Date: 20110603
  Receipt Date: 20110221
  Transmission Date: 20111010
  Serious: No
  Sender: FDA-Public Use
  Company Number: 2011SP008180

PATIENT

DRUGS (1)
  1. SAPHRIS [Suspect]
     Indication: MANIA
     Dosage: 5 MG;QD;SL
     Route: 060
     Dates: start: 20110201, end: 20110220

REACTIONS (3)
  - INAPPROPRIATE SCHEDULE OF DRUG ADMINISTRATION [None]
  - UNDERDOSE [None]
  - TONGUE ULCERATION [None]
